FAERS Safety Report 11987843 (Version 1)
Quarter: 2016Q1

REPORT INFORMATION
  Report Type: Spontaneous
  Country: US (occurrence: US)
  Receive Date: 20160202
  Receipt Date: 20160202
  Transmission Date: 20160526
  Serious: No
  Sender: FDA-Public Use
  Company Number: US-UCBSA-2015008532

PATIENT

DRUGS (2)
  1. KEPPRA [Suspect]
     Active Substance: LEVETIRACETAM
     Indication: SEIZURE
     Dosage: 500 MG
     Route: 042
  2. KEPPRA [Suspect]
     Active Substance: LEVETIRACETAM
     Dosage: 2000MG OF KEPPRA AS MY EVERYDAY DOSE GIVEN AS 2 DOSES OF 750MG KEPPRA IV, WHICH EQUALS 1500MG
     Route: 042

REACTIONS (2)
  - Drug dispensing error [Unknown]
  - Seizure [Unknown]
